FAERS Safety Report 7389873-0 (Version None)
Quarter: 2011Q2

REPORT INFORMATION
  Report Type: 
  Country: None (occurrence: None)
  Receive Date: 20110401
  Receipt Date: 20110330
  Transmission Date: 20111010
  Serious: Yes (Death, Life-Threatening, Disabling)
  Sender: FDA-Public Use
  Company Number: ID-B.I. PHARMACEUTICALS,INC./RIDGEFIELD-2010-CS-00948IP

PATIENT
  Sex: Male

DRUGS (2)
  1. DABIGATRAN [Suspect]
     Indication: ATRIAL FIBRILLATION
     Dosage: 75 MG
     Route: 048
     Dates: end: 20100819
  2. MYICARDIS PLUS [Concomitant]
     Indication: HYPERTENSION
     Dosage: 80MG+12.5MG/DAY
     Route: 048
     Dates: end: 20100819

REACTIONS (1)
  - MYOCARDIAL INFARCTION [None]
